FAERS Safety Report 5953947-9 (Version None)
Quarter: 2008Q4

REPORT INFORMATION
  Report Type: 
  Country: None (occurrence: None)
  Receive Date: 20081114
  Receipt Date: 20081104
  Transmission Date: 20090506
  Serious: Yes (Other)
  Sender: FDA-Public Use
  Company Number: US-PFIZER INC-2008092644

PATIENT
  Sex: Female
  Weight: 82.6 kg

DRUGS (10)
  1. SUTENT [Suspect]
     Indication: OVARIAN CANCER
     Dosage: DAILY DOSE:37.5MG
     Route: 048
     Dates: start: 20081022, end: 20081022
  2. AVAPRO [Concomitant]
     Route: 048
  3. COLACE [Concomitant]
     Route: 048
  4. COMPAZINE [Concomitant]
     Route: 048
  5. CYMBALTA [Concomitant]
     Route: 048
  6. MULTI-VITAMINS [Concomitant]
     Dosage: TEXT:1 TAB
     Route: 048
  7. PRILOSEC [Concomitant]
     Route: 048
  8. SYNTHROID [Concomitant]
     Route: 048
  9. PYRIDOXINE HYDROCHLORIDE [Concomitant]
     Route: 048
  10. ERGOCALCIFEROL [Concomitant]
     Route: 048

REACTIONS (2)
  - EYELID OEDEMA [None]
  - URTICARIA [None]
